FAERS Safety Report 8216727-X (Version None)
Quarter: 2012Q1

REPORT INFORMATION
  Report Type: 
  Country: None (occurrence: None)
  Receive Date: 20120316
  Receipt Date: 20120314
  Transmission Date: 20120608
  Serious: Yes (Death, Life-Threatening, Hospitalization)
  Sender: FDA-Public Use
  Company Number: DE-ROCHE-1028829

PATIENT
  Age: 67 Year
  Sex: Female
  Weight: 69 kg

DRUGS (10)
  1. VEMURAFENIB [Suspect]
     Indication: MALIGNANT MELANOMA
     Route: 048
     Dates: start: 20111121
  2. DERMOXIN (GERMANY) [Concomitant]
     Dosage: TOTAL DAILY DOSE: 1 APPLICATION
     Dates: start: 20111209, end: 20120109
  3. SIMVASTATIN [Concomitant]
     Dates: start: 20000101, end: 20120109
  4. METOPROLOL SUCCINATE [Concomitant]
     Dates: start: 19830101, end: 20120109
  5. RAMIPRIL [Concomitant]
     Dosage: 5/25 MG DAILY
     Dates: start: 19830101, end: 20120109
  6. TRAVOPROST AND TIMOLOL [Concomitant]
     Dosage: 1 DRP DAILY
     Dates: start: 20030101, end: 20120109
  7. CLOPIDOGREL [Concomitant]
     Dates: start: 20070701, end: 20120109
  8. VEMURAFENIB [Suspect]
     Dosage: DOSE REDUCED, TEMPORARILY INTERRUPTED
     Dates: start: 20111220, end: 20120104
  9. MOMETASONE FUROATE [Concomitant]
     Dosage: ECURAL OINTMENT, TOTAL DAILY DOSE: 1 APPLICATION
     Dates: start: 20111209, end: 20120109
  10. MOBILAT [Concomitant]
     Dates: start: 20111213, end: 20120109

REACTIONS (6)
  - MULTI-ORGAN DISORDER [None]
  - COMA [None]
  - PNEUMONIA [None]
  - DIABETIC KETOACIDOSIS [None]
  - ACUTE MYOCARDIAL INFARCTION [None]
  - ESCHERICHIA SEPSIS [None]
